FAERS Safety Report 17899745 (Version 1)
Quarter: 2020Q2

REPORT INFORMATION
  Report Type: Spontaneous
  Country: US (occurrence: US)
  Receive Date: 20200615
  Receipt Date: 20200615
  Transmission Date: 20200714
  Serious: No
  Sender: FDA-Public Use
  Company Number: None

PATIENT
  Age: 65 Year
  Sex: Female

DRUGS (8)
  1. SULFASALZINE [Concomitant]
     Active Substance: SULFASALAZINE
  2. FERROUS SULFATE. [Concomitant]
     Active Substance: FERROUS SULFATE
  3. TORSEMIDE. [Concomitant]
     Active Substance: TORSEMIDE
  4. VITAMIN D2 [Concomitant]
     Active Substance: ERGOCALCIFEROL
  5. ASPIRIN. [Concomitant]
     Active Substance: ASPIRIN
  6. ATENOLOL. [Concomitant]
     Active Substance: ATENOLOL
  7. FOLIC ACID. [Concomitant]
     Active Substance: FOLIC ACID
  8. LETAIRIS [Suspect]
     Active Substance: AMBRISENTAN
     Indication: PULMONARY ARTERIAL HYPERTENSION

REACTIONS (1)
  - Secretion discharge [None]

NARRATIVE: CASE EVENT DATE: 20200615
